FAERS Safety Report 17089816 (Version 2)
Quarter: 2019Q4

REPORT INFORMATION
  Report Type: Spontaneous
  Country: DE (occurrence: DE)
  Receive Date: 20191128
  Receipt Date: 20191202
  Transmission Date: 20200122
  Serious: Yes (Death, Other)
  Sender: FDA-Public Use
  Company Number: DE-ABBVIE-19K-062-3173573-00

PATIENT
  Age: 63 Year
  Sex: Male

DRUGS (1)
  1. SIMDAX [Suspect]
     Active Substance: LEVOSIMENDAN
     Indication: PRODUCT USED FOR UNKNOWN INDICATION
     Dosage: LOW DOSE
     Route: 065
     Dates: start: 20191010

REACTIONS (3)
  - Multiple organ dysfunction syndrome [Fatal]
  - Right ventricular failure [Fatal]
  - Cerebral haemorrhage [Fatal]

NARRATIVE: CASE EVENT DATE: 201911
